FAERS Safety Report 6492381-2 (Version None)
Quarter: 2009Q4

REPORT INFORMATION
  Report Type: 
  Country: None (occurrence: None)
  Receive Date: 20091214
  Receipt Date: 20091203
  Transmission Date: 20100525
  Serious: Yes (Other)
  Sender: FDA-Public Use
  Company Number: GB-ASTRAZENECA-2009SE25879

PATIENT
  Age: 55 Year
  Sex: Female

DRUGS (3)
  1. QUETIAPINE [Suspect]
     Indication: SCHIZOPHRENIA
     Route: 048
     Dates: start: 20091013
  2. VALPROATE SODIUM [Suspect]
     Indication: SCHIZOPHRENIA
     Route: 048
     Dates: start: 20090810
  3. ZAPONEX [Suspect]
     Route: 048
     Dates: start: 20090911, end: 20090923

REACTIONS (7)
  - ELECTROCARDIOGRAM ABNORMAL [None]
  - LOWER RESPIRATORY TRACT INFECTION [None]
  - MYOCARDITIS [None]
  - NEUTROPENIA [None]
  - PYREXIA [None]
  - TACHYCARDIA [None]
  - WHITE BLOOD CELL COUNT DECREASED [None]
